FAERS Safety Report 4282190-7 (Version None)
Quarter: 2004Q1

REPORT INFORMATION
  Report Type: 
  Country: None (occurrence: None)
  Receive Date: 20040130
  Receipt Date: 20031022
  Transmission Date: 20041129
  Serious: Yes (Other)
  Sender: FDA-Public Use
  Company Number: US-GLAXOSMITHKLINE-A0431464A

PATIENT
  Sex: Female

DRUGS (1)
  1. PAXIL [Suspect]
     Indication: ILL-DEFINED DISORDER
     Route: 048

REACTIONS (25)
  - AFFECT LABILITY [None]
  - AKATHISIA [None]
  - ANXIETY [None]
  - BLOOD PRESSURE INCREASED [None]
  - BRUXISM [None]
  - DEPRESSION [None]
  - DYSPNOEA [None]
  - ECZEMA [None]
  - HEART RATE IRREGULAR [None]
  - INSOMNIA [None]
  - MICTURITION URGENCY [None]
  - NAUSEA [None]
  - NOCTURIA [None]
  - PANIC ATTACK [None]
  - PARANOIA [None]
  - POLYURIA [None]
  - SOMNOLENCE [None]
  - SUFFOCATION FEELING [None]
  - SUICIDAL IDEATION [None]
  - TACHYCARDIA [None]
  - THINKING ABNORMAL [None]
  - VAGINITIS [None]
  - VENTRICULAR EXTRASYSTOLES [None]
  - VISION BLURRED [None]
  - WEIGHT INCREASED [None]
